FAERS Safety Report 4754225-6 (Version None)
Quarter: 2005Q3

REPORT INFORMATION
  Report Type: 
  Country: None (occurrence: None)
  Receive Date: 20050825
  Receipt Date: 20050812
  Transmission Date: 20060218
  Serious: Yes (Hospitalization)
  Sender: FDA-Public Use
  Company Number: GBWYE889008AUG05

PATIENT
  Age: 46 Year
  Sex: Female

DRUGS (4)
  1. EFFEXOR [Suspect]
     Indication: DEPRESSION
     Dosage: SEE IMAGE
     Route: 048
     Dates: end: 20050626
  2. EFFEXOR [Suspect]
     Indication: DEPRESSION
     Dosage: SEE IMAGE
     Route: 048
     Dates: start: 20050627, end: 20050725
  3. DIAZEPAM [Concomitant]
  4. BENZYLPENICILLIN (BENZYLPENICILLIN) [Concomitant]

REACTIONS (6)
  - ASTHENIA [None]
  - CONVERSION DISORDER [None]
  - CONVULSION [None]
  - DRUG WITHDRAWAL SYNDROME [None]
  - HEMIPARESIS [None]
  - SLEEP PARALYSIS [None]
